FAERS Safety Report 6823059-0 (Version None)
Quarter: 2010Q3

REPORT INFORMATION
  Report Type: 
  Country: None (occurrence: None)
  Receive Date: 20100708
  Receipt Date: 20100629
  Transmission Date: 20110219
  Serious: Yes (Other)
  Sender: FDA-Public Use
  Company Number: B0664186A

PATIENT
  Sex: Female

DRUGS (2)
  1. FLIXOTIDE DISKUS [Suspect]
     Indication: ASTHMA
     Route: 065
  2. VENTOLIN [Suspect]
     Indication: ASTHMA
     Route: 065

REACTIONS (1)
  - ASTHMA [None]
